FAERS Safety Report 6276139-5 (Version None)
Quarter: 2009Q3

REPORT INFORMATION
  Report Type: 
  Country: None (occurrence: None)
  Receive Date: 20090720
  Receipt Date: 20090720
  Transmission Date: 20100115
  Serious: Yes (Hospitalization)
  Sender: FDA-Public Use
  Company Number: None

PATIENT

DRUGS (5)
  1. AMLODIPINE [Suspect]
     Indication: HYPERTENSION
     Dosage: 5MG ONCE DAILY ORAL
     Route: 048
     Dates: start: 20090616, end: 20090708
  2. TEGRETOL-XR [Suspect]
     Indication: CONVULSION
     Dosage: 1400MG ONCE DAILY/DIVIDED ORAL
     Route: 048
     Dates: start: 20010101, end: 20090707
  3. MULTI-VITAMIN [Concomitant]
  4. KEPPRA [Concomitant]
  5. MICARDIS HCT [Concomitant]

REACTIONS (6)
  - CONFUSIONAL STATE [None]
  - DIZZINESS [None]
  - FALL [None]
  - HYPONATRAEMIA [None]
  - MIDDLE INSOMNIA [None]
  - THERAPEUTIC AGENT TOXICITY [None]
